FAERS Safety Report 25892387 (Version 2)
Quarter: 2025Q4

REPORT INFORMATION
  Report Type: Spontaneous
  Country: US (occurrence: US)
  Receive Date: 20251007
  Receipt Date: 20251107
  Transmission Date: 20260118
  Serious: Yes (Hospitalization)
  Sender: SANOFI AVENTIS
  Company Number: US-SA-2025SA298413

PATIENT
  Age: 47 Year
  Sex: Male

DRUGS (3)
  1. ELITEK [Suspect]
     Active Substance: RASBURICASE
     Indication: Lymphadenopathy
     Dosage: 12 MG, 1X (12 MG ONCE, EVERY 21 DAYS FOR 6 CYCLES)
     Route: 042
  2. ELITEK [Suspect]
     Active Substance: RASBURICASE
     Indication: Acute kidney injury
     Dosage: 7.5 MG, QD
     Route: 030
  3. ELITEK [Suspect]
     Active Substance: RASBURICASE
     Indication: Blood uric acid

REACTIONS (3)
  - Hospitalisation [Unknown]
  - Off label use [Unknown]
  - Product use in unapproved indication [Unknown]
